FAERS Safety Report 7440104-2 (Version None)
Quarter: 2011Q2

REPORT INFORMATION
  Report Type: 
  Country: None (occurrence: None)
  Receive Date: 20110427
  Receipt Date: 20110419
  Transmission Date: 20111010
  Serious: Yes (Hospitalization)
  Sender: FDA-Public Use
  Company Number: BR-ROCHE-766228

PATIENT
  Sex: Female
  Weight: 74 kg

DRUGS (9)
  1. TOCILIZUMAB [Suspect]
     Route: 042
     Dates: start: 20110101
  2. TOCILIZUMAB [Suspect]
     Route: 042
     Dates: start: 20110201
  3. ALENDRONATE SODIUM [Concomitant]
  4. TOCILIZUMAB [Suspect]
     Dosage: DOSE, FREQUENCY: UNSPECIFIED
     Route: 042
     Dates: start: 20101101
  5. METHOTREXATE [Concomitant]
     Dosage: DRUG REPORTED AS TECNOMET
  6. TOCILIZUMAB [Suspect]
     Route: 042
     Dates: start: 20110301, end: 20110301
  7. PREDSIM [Concomitant]
  8. TOCILIZUMAB [Suspect]
     Indication: RHEUMATOID ARTHRITIS
     Route: 042
     Dates: start: 20101004
  9. TOCILIZUMAB [Suspect]
     Route: 042
     Dates: start: 20101201

REACTIONS (4)
  - BONE PAIN [None]
  - NEPHROLITHIASIS [None]
  - ERYSIPELAS [None]
  - DRUG INEFFECTIVE [None]
